FAERS Safety Report 11092918 (Version 1)
Quarter: 2015Q2

REPORT INFORMATION
  Report Type: Spontaneous
  Country: FR (occurrence: FR)
  Receive Date: 20150506
  Receipt Date: 20150506
  Transmission Date: 20150821
  Serious: Yes (Life-Threatening, Hospitalization, Other)
  Sender: FDA-Public Use
  Company Number: FR-ELI_LILLY_AND_COMPANY-FR201504009315

PATIENT
  Age: 48 Year
  Sex: Female

DRUGS (7)
  1. NEXIUM [Concomitant]
     Active Substance: ESOMEPRAZOLE MAGNESIUM
  2. FLUDROCORTISONE [Concomitant]
     Active Substance: FLUDROCORTISONE
  3. LOXEN                              /00639802/ [Concomitant]
     Active Substance: NICARDIPINE
  4. NEBIVOLOL [Concomitant]
     Active Substance: NEBIVOLOL
  5. HYDROCORTISONE. [Concomitant]
     Active Substance: HYDROCORTISONE
  6. UMULINE [Suspect]
     Active Substance: INSULIN HUMAN
     Indication: INSULIN-REQUIRING TYPE 2 DIABETES MELLITUS
     Dosage: 20 IU, QD
     Route: 048
     Dates: end: 20150205
  7. ATARAX [Concomitant]
     Active Substance: HYDROXYZINE\HYDROXYZINE HYDROCHLORIDE

REACTIONS (4)
  - Fall [Recovered/Resolved with Sequelae]
  - Pelvic fracture [Recovered/Resolved with Sequelae]
  - Hypoglycaemic coma [Recovered/Resolved]
  - Hypothermia [Unknown]

NARRATIVE: CASE EVENT DATE: 20131110
